FAERS Safety Report 5533787-5 (Version None)
Quarter: 2007Q4

REPORT INFORMATION
  Report Type: 
  Country: None (occurrence: None)
  Receive Date: 20071204
  Receipt Date: 20071127
  Transmission Date: 20080405
  Serious: Yes (Hospitalization)
  Sender: FDA-Public Use
  Company Number: CO-ELI_LILLY_AND_COMPANY-CO200709002767

PATIENT
  Age: 67 Year
  Sex: Female

DRUGS (7)
  1. BYETTA [Suspect]
     Indication: DIABETES MELLITUS
     Dosage: 5 UG, DAILY (1/D)
     Route: 058
     Dates: start: 20070813
  2. BYETTA [Suspect]
     Dosage: 10 UG, 2/D
     Route: 058
  3. GLIMEPIRIDE [Concomitant]
     Indication: DIABETES MELLITUS
     Dosage: UNK, UNKNOWN
     Route: 065
  4. LANTUS [Concomitant]
     Indication: DIABETES MELLITUS
     Dosage: 20 IU, UNKNOWN
     Route: 065
  5. LANTUS [Concomitant]
     Dosage: 10 IU, UNKNOWN
     Route: 065
  6. SERETIDE [Concomitant]
     Dosage: UNK, UNKNOWN
     Route: 065
  7. IPRATROPIUM BROMIDE [Concomitant]
     Dosage: UNK, UNKNOWN
     Route: 065

REACTIONS (2)
  - INJECTION SITE HAEMATOMA [None]
  - PNEUMONIA [None]
